FAERS Safety Report 8802737 (Version 2)
Quarter: 2015Q1

REPORT INFORMATION
  Report Type: Report from Study
  Country: US (occurrence: US)
  Receive Date: 20120921
  Receipt Date: 20150312
  Transmission Date: 20150721
  Serious: Yes (Death)
  Sender: FDA-Public Use
  Company Number: US-ROCHE-1124369

PATIENT
  Sex: Female
  Weight: 54 kg

DRUGS (3)
  1. AVASTIN [Suspect]
     Active Substance: BEVACIZUMAB
     Indication: SARCOMA
     Route: 042
     Dates: start: 20050902
  2. CAMPTOTHECIN [Concomitant]
     Active Substance: CAMPTOTHECIN
  3. AVASTIN [Suspect]
     Active Substance: BEVACIZUMAB
     Route: 042
     Dates: start: 20060111

REACTIONS (2)
  - Off label use [Unknown]
  - Death [Fatal]
